FAERS Safety Report 8860189 (Version 2)
Quarter: 2012Q4

REPORT INFORMATION
  Report Type: 
  Country: US (occurrence: US)
  Receive Date: 20121025
  Receipt Date: 20121206
  Transmission Date: 20130627
  Serious: Yes (Other)
  Sender: FDA-Public Use
  Company Number: US-ASTELLAS-2012US010313

PATIENT
  Sex: Male
  Weight: 91 kg

DRUGS (1)
  1. PROGRAF [Suspect]
     Indication: LIVER TRANSPLANT
     Dosage: 3 mg, UID/QD
     Route: 048
     Dates: start: 20001108

REACTIONS (1)
  - Eye haemorrhage [Not Recovered/Not Resolved]
